FAERS Safety Report 6977005-X (Version None)
Quarter: 2010Q3

REPORT INFORMATION
  Report Type: 
  Country: None (occurrence: None)
  Receive Date: 20100910
  Receipt Date: 20100901
  Transmission Date: 20110219
  Serious: Yes (Other)
  Sender: FDA-Public Use
  Company Number: US-ROCHE-725191

PATIENT
  Sex: Male

DRUGS (3)
  1. VALIUM [Suspect]
     Indication: PRODUCT USED FOR UNKNOWN INDICATION
     Route: 065
  2. TARCEVA [Suspect]
     Indication: PRODUCT USED FOR UNKNOWN INDICATION
     Route: 065
  3. TARCEVA [Suspect]
     Route: 065

REACTIONS (6)
  - CYST [None]
  - DIARRHOEA [None]
  - DISEASE PROGRESSION [None]
  - DRUG EFFECT DECREASED [None]
  - DYSPNOEA [None]
  - RASH [None]
